FAERS Safety Report 4436227-2 (Version None)
Quarter: 2004Q3

REPORT INFORMATION
  Report Type: 
  Country: None (occurrence: None)
  Receive Date: 20040830
  Receipt Date: 20040528
  Transmission Date: 20050211
  Serious: Yes (Other)
  Sender: FDA-Public Use
  Company Number: US-BRISTOL-MYERS SQUIBB COMPANY-12601035

PATIENT
  Sex: Male

DRUGS (1)
  1. ERBITUX [Suspect]
     Indication: COLON CANCER METASTATIC
     Dosage: LOADING DOSE - 400 MG, PATIENT REC'D APPROX. 20 MG
     Route: 042

REACTIONS (1)
  - HYPERSENSITIVITY [None]
